FAERS Safety Report 25555369 (Version 1)
Quarter: 2025Q3

REPORT INFORMATION
  Report Type: Spontaneous
  Country: EU (occurrence: EU)
  Receive Date: 20250715
  Receipt Date: 20250715
  Transmission Date: 20251020
  Serious: Yes (Hospitalization, Other)
  Sender: ELI LILLY AND COMPANY
  Company Number: EU-ELI_LILLY_AND_COMPANY-IT202507005343

PATIENT
  Age: 51 Year
  Sex: Male

DRUGS (1)
  1. MIRIKIZUMAB [Suspect]
     Active Substance: MIRIKIZUMAB
     Indication: Product used for unknown indication
     Route: 042

REACTIONS (3)
  - Neutropenia [Recovering/Resolving]
  - Cholangitis sclerosing [Recovering/Resolving]
  - Colitis ulcerative [Recovering/Resolving]
